FAERS Safety Report 4345196-5 (Version None)
Quarter: 2004Q2

REPORT INFORMATION
  Report Type: 
  Country: None (occurrence: None)
  Receive Date: 20040420
  Receipt Date: 20040408
  Transmission Date: 20050107
  Serious: Yes (Life-Threatening)
  Sender: FDA-Public Use
  Company Number: 2004AP00639

PATIENT
  Age: 71 Year
  Sex: Female

DRUGS (9)
  1. IRESSA [Suspect]
     Indication: ADENOCARCINOMA
     Dosage: 250 MG DAILY PO
     Route: 048
     Dates: start: 20031224, end: 20031227
  2. IRESSA [Suspect]
     Indication: NON-SMALL CELL LUNG CANCER
     Dosage: 250 MG DAILY PO
     Route: 048
     Dates: start: 20031224, end: 20031227
  3. IRESSA [Suspect]
     Indication: ADENOCARCINOMA
     Dosage: 250 MG DAILY PO
     Route: 048
     Dates: start: 20040105, end: 20040127
  4. IRESSA [Suspect]
     Indication: NON-SMALL CELL LUNG CANCER
     Dosage: 250 MG DAILY PO
     Route: 048
     Dates: start: 20040105, end: 20040127
  5. RINDERON [Concomitant]
  6. OMEPRAZOLE [Concomitant]
  7. CARBOPLATIN [Concomitant]
  8. TAXOTERE [Concomitant]
  9. RADIATION THERAPY [Concomitant]

REACTIONS (7)
  - BLOOD GASES ABNORMAL [None]
  - BLOOD LACTATE DEHYDROGENASE INCREASED [None]
  - CHEST X-RAY ABNORMAL [None]
  - DISSEMINATED INTRAVASCULAR COAGULATION [None]
  - GAMMA-GLUTAMYLTRANSFERASE INCREASED [None]
  - PULMONARY ALVEOLAR HAEMORRHAGE [None]
  - PYREXIA [None]
